FAERS Safety Report 15302444 (Version 6)
Quarter: 2018Q4

REPORT INFORMATION
  Report Type: Spontaneous
  Country: JP (occurrence: JP)
  Receive Date: 20180821
  Receipt Date: 20181211
  Transmission Date: 20190204
  Serious: Yes (Other)
  Sender: FDA-Public Use
  Company Number: JP-SAKK-2018SA223950AA

PATIENT
  Age: 43 Year
  Sex: Female

DRUGS (5)
  1. TALION [BEPOTASTINE BESILATE] [Concomitant]
     Indication: DERMATITIS ATOPIC
     Dosage: 10 MG, BID
     Route: 048
     Dates: start: 201710
  2. DUPIXENT [Suspect]
     Active Substance: DUPILUMAB
     Indication: DERMATITIS ATOPIC
     Dosage: 600 MG, 1X
     Route: 058
     Dates: start: 20180810, end: 20180810
  3. ALMETA [Concomitant]
     Active Substance: ALCLOMETASONE DIPROPIONATE
     Indication: DERMATITIS ATOPIC
     Dosage: 0.2 G
     Route: 061
     Dates: start: 201710
  4. DUPIXENT [Suspect]
     Active Substance: DUPILUMAB
     Dosage: UNK UNK, QOW
     Route: 058
     Dates: start: 20180824
  5. ANTEBATE [Concomitant]
     Active Substance: BETAMETHASONE DIPROPIONATE
     Indication: DERMATITIS ATOPIC
     Dosage: 5 G
     Route: 061
     Dates: start: 201710

REACTIONS (4)
  - Pruritus [Recovered/Resolved]
  - Erythema multiforme [Recovered/Resolved]
  - Oedema [Recovered/Resolved]
  - Erythema annulare [Recovered/Resolved]

NARRATIVE: CASE EVENT DATE: 20180811
